FAERS Safety Report 25145289 (Version 2)
Quarter: 2025Q2

REPORT INFORMATION
  Report Type: Spontaneous
  Country: US (occurrence: US)
  Receive Date: 20250401
  Receipt Date: 20250505
  Transmission Date: 20250716
  Serious: No
  Sender: BIOGEN
  Company Number: US-BIOGEN-2025BI01306016

PATIENT
  Age: 45 Year
  Sex: Male

DRUGS (1)
  1. TYSABRI [Suspect]
     Active Substance: NATALIZUMAB
     Indication: Multiple sclerosis
     Route: 050
     Dates: start: 20250327

REACTIONS (4)
  - Dry mouth [Unknown]
  - Dry throat [Unknown]
  - Sinus congestion [Unknown]
  - Pruritus [Unknown]

NARRATIVE: CASE EVENT DATE: 20250327
